FAERS Safety Report 19857454 (Version 2)
Quarter: 2021Q4

REPORT INFORMATION
  Report Type: Other
  Country: US (occurrence: US)
  Receive Date: 20210920
  Receipt Date: 20211029
  Transmission Date: 20220303
  Serious: Yes (Other)
  Sender: FDA-Public Use
  Company Number: US-EDGE PHARMA LLC-2118576

PATIENT
  Age: 58 Year
  Sex: Female

DRUGS (1)
  1. MITOMYCIN [Suspect]
     Active Substance: MITOMYCIN
     Indication: Open angle glaucoma
     Route: 047
     Dates: start: 20210817, end: 20210817

REACTIONS (1)
  - Conjunctival oedema [Recovering/Resolving]

NARRATIVE: CASE EVENT DATE: 20210825
